FAERS Safety Report 5748151-3 (Version None)
Quarter: 2008Q2

REPORT INFORMATION
  Report Type: 
  Country: None (occurrence: None)
  Receive Date: 20080523
  Receipt Date: 20080428
  Transmission Date: 20081010
  Serious: No
  Sender: FDA-Public Use
  Company Number: US-BOEHRINGER INGELHEIM GMBH, GERMANY-2008-BP-06678BP

PATIENT
  Sex: Male

DRUGS (3)
  1. CLONIDINE HCL [Suspect]
     Indication: HYPERTENSION
     Route: 048
     Dates: start: 20070901
  2. PRILOSEC [Concomitant]
     Indication: HIATUS HERNIA
  3. TECHTURNA [Concomitant]
     Indication: HYPERTENSION

REACTIONS (1)
  - DRUG INEFFECTIVE [None]
